FAERS Safety Report 4618290-9 (Version None)
Quarter: 2005Q2

REPORT INFORMATION
  Report Type: 
  Country: None (occurrence: None)
  Receive Date: 20050310
  Receipt Date: 20040928
  Transmission Date: 20051028
  Serious: Yes (Hospitalization)
  Sender: FDA-Public Use
  Company Number: F (LIT) 09/1104

PATIENT
  Age: 31 Year
  Sex: Female

DRUGS (2)
  1. AMOXICILLIN [Suspect]
     Indication: SINUSITIS
     Dosage: 2000 MG DAILY ORAL
     Route: 048
  2. LEVOFLOXACIN [Suspect]
     Indication: SINUSITIS
     Dosage: 500 MG DAILY ORAL
     Route: 048

REACTIONS (1)
  - HEPATITIS [None]
